FAERS Safety Report 5481770-0 (Version None)
Quarter: 2007Q3

REPORT INFORMATION
  Report Type: 
  Country: None (occurrence: None)
  Receive Date: 20070917
  Receipt Date: 20060731
  Transmission Date: 20080115
  Serious: Yes (Other)
  Sender: FDA-Public Use
  Company Number: S06-USA-03015-01

PATIENT
  Age: 31 Year
  Sex: Female
  Weight: 64.3654 kg

DRUGS (3)
  1. CELEXA [Suspect]
  2. PAXIL [Suspect]
     Dates: start: 19990101
  3. ALPRAZOLAM [Concomitant]

REACTIONS (1)
  - SUICIDAL IDEATION [None]
